FAERS Safety Report 6884761-8 (Version None)
Quarter: 2010Q3

REPORT INFORMATION
  Report Type: 
  Country: None (occurrence: None)
  Receive Date: 20100729
  Receipt Date: 20070822
  Transmission Date: 20110219
  Serious: Yes (Other)
  Sender: FDA-Public Use
  Company Number: US-PFIZER INC-2007070027

PATIENT
  Sex: Female

DRUGS (4)
  1. CORTEF [Suspect]
     Indication: ADRENOGENITAL SYNDROME
     Route: 048
     Dates: start: 20061001
  2. ZANTAC [Interacting]
     Indication: VOMITING
     Dates: start: 20070501
  3. FLORINEF [Concomitant]
  4. SODIUM CHLORIDE [Concomitant]

REACTIONS (4)
  - 17-HYDROXYPROGESTERONE DECREASED [None]
  - DRUG INTERACTION [None]
  - GROWTH RETARDATION [None]
  - VOMITING [None]
